FAERS Safety Report 12353732 (Version 4)
Quarter: 2016Q2

REPORT INFORMATION
  Report Type: Report from Study
  Country: US (occurrence: US)
  Receive Date: 20160511
  Receipt Date: 20160623
  Transmission Date: 20160815
  Serious: Yes (Other)
  Sender: FDA-Public Use
  Company Number: US-GILEAD-2016-0212711

PATIENT
  Age: 72 Year
  Sex: Female
  Weight: 81.18 kg

DRUGS (11)
  1. IPRATROPIUM BROMIDE. [Concomitant]
     Active Substance: IPRATROPIUM BROMIDE
  2. SYMBICORT [Concomitant]
     Active Substance: BUDESONIDE\FORMOTEROL FUMARATE DIHYDRATE
  3. ADEMPAS [Concomitant]
     Active Substance: RIOCIGUAT
  4. XOPENEX [Concomitant]
     Active Substance: LEVALBUTEROL HYDROCHLORIDE
  5. LEVAQUIN [Concomitant]
     Active Substance: LEVOFLOXACIN
  6. CELEBREX [Concomitant]
     Active Substance: CELECOXIB
  7. GABAPENTIN. [Concomitant]
     Active Substance: GABAPENTIN
  8. AMBRISENTAN [Suspect]
     Active Substance: AMBRISENTAN
     Indication: PULMONARY ARTERIAL HYPERTENSION
     Dosage: 10 MG, QD
     Route: 065
     Dates: start: 20120924
  9. OXYGEN. [Concomitant]
     Active Substance: OXYGEN
  10. ATROVENT [Concomitant]
     Active Substance: IPRATROPIUM BROMIDE
  11. MUCINEX [Concomitant]
     Active Substance: GUAIFENESIN

REACTIONS (4)
  - Lower respiratory tract inflammation [Recovered/Resolved]
  - Secretion discharge [Recovering/Resolving]
  - Constipation [Recovering/Resolving]
  - Abdominal pain upper [Recovering/Resolving]
